FAERS Safety Report 24307761 (Version 2)
Quarter: 2024Q3

REPORT INFORMATION
  Report Type: Spontaneous
  Country: AU (occurrence: AU)
  Receive Date: 20240911
  Receipt Date: 20240926
  Transmission Date: 20241017
  Serious: No
  Sender: MYLAN
  Company Number: AU-MYLANLABS-2024M1081821

PATIENT
  Age: 54 Year
  Sex: Male
  Weight: 110 kg

DRUGS (6)
  1. CLOZARIL [Suspect]
     Active Substance: CLOZAPINE
     Indication: Schizophrenia
     Dosage: 500 MILLIGRAM, QD (100 MG IN MORNING AND 400 MG AT NIGHT)
     Route: 048
     Dates: start: 20200601
  2. OLANZAPINE [Concomitant]
     Active Substance: OLANZAPINE
     Dosage: 5 MILLIGRAM, BID (PRN)
     Route: 065
  3. ARIPIPRAZOLE [Concomitant]
     Active Substance: ARIPIPRAZOLE
     Dosage: 30 MILLIGRAM
     Route: 065
  4. SERTRALINE [Concomitant]
     Active Substance: SERTRALINE HYDROCHLORIDE
     Dosage: 100 MILLIGRAM, AM (100MG MANE)
     Route: 065
  5. METFORMIN [Concomitant]
     Active Substance: METFORMIN HYDROCHLORIDE
     Dosage: 1500 MILLIGRAM
     Route: 065
  6. ATORVASTATIN [Concomitant]
     Active Substance: ATORVASTATIN
     Dosage: 40 MILLIGRAM, AM (40MG MANE)
     Route: 065

REACTIONS (7)
  - Upper respiratory tract infection [Unknown]
  - Troponin T increased [Unknown]
  - C-reactive protein increased [Unknown]
  - Viral infection [Unknown]
  - Anaemia [Unknown]
  - Lymphopenia [Unknown]
  - Platelet count decreased [Unknown]

NARRATIVE: CASE EVENT DATE: 20240904
